FAERS Safety Report 4749538-8 (Version None)
Quarter: 2005Q3

REPORT INFORMATION
  Report Type: 
  Country: None (occurrence: None)
  Receive Date: 20050819
  Receipt Date: 20050819
  Transmission Date: 20060218
  Serious: Yes (Hospitalization)
  Sender: FDA-Public Use
  Company Number: None

PATIENT
  Age: 64 Year
  Sex: Male
  Weight: 62.5964 kg

DRUGS (12)
  1. CARBOPLATIN [Suspect]
     Indication: LUNG NEOPLASM MALIGNANT
     Dosage: AUC 5 IV DAY 1
     Route: 042
     Dates: start: 20050705
  2. CARBOPLATIN [Suspect]
     Indication: LUNG NEOPLASM MALIGNANT
     Dosage: AUC 5 IV DAY 1
     Route: 042
     Dates: start: 20050712
  3. CPT-11 [Suspect]
     Indication: LUNG NEOPLASM MALIGNANT
     Dosage: 50MG/QD IV DAY 1-8
     Route: 042
     Dates: start: 20050705
  4. CLOPIDROGEL [Concomitant]
  5. NICOTINE [Concomitant]
  6. DIAZEPAM [Concomitant]
  7. DILTIAZEM [Concomitant]
  8. INSULIN [Concomitant]
  9. VALSARTAN [Concomitant]
  10. CYCLOBENZAPRINE HCL [Concomitant]
  11. LORTAB [Concomitant]
  12. CLONIDINE [Concomitant]

REACTIONS (1)
  - HERPES ZOSTER [None]
